FAERS Safety Report 7264159-3 (Version None)
Quarter: 2011Q1

REPORT INFORMATION
  Report Type: 
  Country: None (occurrence: None)
  Receive Date: 20110131
  Receipt Date: 20110119
  Transmission Date: 20110831
  Serious: Yes (Other)
  Sender: FDA-Public Use
  Company Number: US-BIOGENIDEC-2011BI002085

PATIENT
  Age: 54 Year
  Sex: Male

DRUGS (2)
  1. TYSABRI [Suspect]
     Indication: MULTIPLE SCLEROSIS
     Route: 042
     Dates: start: 20091009
  2. TYSABRI [Suspect]
     Route: 042
     Dates: start: 20080303, end: 20081107

REACTIONS (2)
  - HIP FRACTURE [None]
  - ROAD TRAFFIC ACCIDENT [None]
